FAERS Safety Report 10032265 (Version 3)
Quarter: 2014Q2

REPORT INFORMATION
  Report Type: Spontaneous
  Country: JP (occurrence: JP)
  Receive Date: 20140324
  Receipt Date: 20140421
  Transmission Date: 20141212
  Serious: Yes (Other)
  Sender: FDA-Public Use
  Company Number: PHHY2014JP033404

PATIENT
  Age: 69 Year
  Sex: Female

DRUGS (8)
  1. FEMARA [Suspect]
     Indication: METASTASES TO LYMPH NODES
  2. FEMARA [Suspect]
     Indication: METASTASES TO LIVER
  3. EPIRUBICIN [Suspect]
     Indication: METASTASES TO LYMPH NODES
     Dosage: 75 MG/M2, UNK
  4. EPIRUBICIN [Suspect]
     Indication: METASTASES TO LIVER
  5. PACLITAXEL [Suspect]
     Indication: METASTASES TO LYMPH NODES
     Dosage: 90 MG/M2, UNK
  6. PACLITAXEL [Suspect]
     Indication: METASTASES TO LIVER
  7. CYCLOPHOSPHAMIDE [Suspect]
     Indication: METASTASES TO LYMPH NODES
     Dosage: 600 MG/M2, UNK
  8. CYCLOPHOSPHAMIDE [Suspect]
     Indication: METASTASES TO LIVER

REACTIONS (6)
  - Lymphadenopathy [Unknown]
  - Metastases to lymph nodes [Unknown]
  - Papillary thyroid cancer [Unknown]
  - Metastases to liver [Unknown]
  - Malignant neoplasm progression [Unknown]
  - Second primary malignancy [Unknown]
